FAERS Safety Report 8380361-1 (Version None)
Quarter: 2012Q2

REPORT INFORMATION
  Report Type: 
  Country: None (occurrence: None)
  Receive Date: 20120523
  Receipt Date: 20120511
  Transmission Date: 20120825
  Serious: Yes (Hospitalization)
  Sender: FDA-Public Use
  Company Number: DE-UCBSA-057046

PATIENT
  Sex: Female

DRUGS (2)
  1. MABTHERA [Concomitant]
     Dates: start: 20110705
  2. CIMZIA [Suspect]
     Dates: start: 20101012, end: 20110501

REACTIONS (1)
  - HEMIPARESIS [None]
